FAERS Safety Report 11452065 (Version 2)
Quarter: 2015Q3

REPORT INFORMATION
  Report Type: Spontaneous
  Country: FR (occurrence: FR)
  Receive Date: 20150903
  Receipt Date: 20150923
  Transmission Date: 20151125
  Serious: Yes (Other)
  Sender: FDA-Public Use
  Company Number: FR-PFIZER INC-2015278319

PATIENT
  Age: 70 Year
  Sex: Male

DRUGS (4)
  1. SUTENT [Suspect]
     Active Substance: SUNITINIB MALATE
     Dosage: ALTERNATING DOSES OF 50 MG AND 37.5 MG
     Route: 048
     Dates: start: 201404, end: 2014
  2. SUTENT [Suspect]
     Active Substance: SUNITINIB MALATE
     Dosage: ALTERNATING DOSES OF 50 MG AND 37.5 MG
     Route: 048
     Dates: start: 201404, end: 2014
  3. SUTENT [Suspect]
     Active Substance: SUNITINIB MALATE
     Indication: RENAL CANCER METASTATIC
     Dosage: UNK, CYCLIC
     Route: 048
     Dates: end: 201302
  4. SUTENT [Suspect]
     Active Substance: SUNITINIB MALATE
     Dosage: 37.5 MG, CYCLIC
     Route: 048
     Dates: start: 20141121

REACTIONS (8)
  - Condition aggravated [Unknown]
  - Asthenia [Not Recovered/Not Resolved]
  - Pericardial effusion [Unknown]
  - Dyspnoea exertional [Not Recovered/Not Resolved]
  - Lymphadenopathy mediastinal [Unknown]
  - Pleural effusion [Unknown]
  - Post procedural complication [Unknown]
  - Cough [Unknown]

NARRATIVE: CASE EVENT DATE: 201312
